FAERS Safety Report 26211263 (Version 1)
Quarter: 2025Q4

REPORT INFORMATION
  Report Type: Spontaneous
  Country: US (occurrence: US)
  Receive Date: 20251230
  Receipt Date: 20251230
  Transmission Date: 20260117
  Serious: Yes (Hospitalization)
  Sender: SANDOZ
  Company Number: US-SANDOZ-SDZ2025US097672

PATIENT
  Age: 62 Year
  Sex: Female

DRUGS (5)
  1. HYDROXYCHLOROQUINE [Suspect]
     Active Substance: HYDROXYCHLOROQUINE
     Indication: Post treatment Lyme disease syndrome
     Dosage: 200 MG, BID
  2. DAPSONE [Suspect]
     Active Substance: DAPSONE
     Indication: Post treatment Lyme disease syndrome
     Dosage: 100 MG, BID
  3. DOXYCYCLINE [Suspect]
     Active Substance: DOXYCYCLINE
     Indication: Post treatment Lyme disease syndrome
     Dosage: 50 MG, BID
  4. RIFAMPIN [Suspect]
     Active Substance: RIFAMPIN
     Indication: Post treatment Lyme disease syndrome
     Dosage: 300 MG, BID
  5. IVERMECTIN [Suspect]
     Active Substance: IVERMECTIN
     Indication: Post treatment Lyme disease syndrome
     Dosage: 14 MG, TIW (ON MONDAY, WEDNESDAY, AND FRIDAY)

REACTIONS (2)
  - Methaemoglobinaemia [Recovering/Resolving]
  - Product use in unapproved indication [Unknown]
